FAERS Safety Report 17990854 (Version 2)
Quarter: 2020Q3

REPORT INFORMATION
  Report Type: Not Available
  Country: US (occurrence: US)
  Receive Date: 20200707
  Receipt Date: 20200717
  Transmission Date: 20201103
  Serious: Yes (Hospitalization)
  Sender: FDA-Public Use
  Company Number: US-NEUROCRINE BIOSCIENCES INC.-2020NBI02205

PATIENT
  Age: 61 Year
  Sex: Female

DRUGS (11)
  1. KEFLEX [Concomitant]
     Active Substance: CEPHALEXIN
  2. SEROQUEL [Concomitant]
     Active Substance: QUETIAPINE FUMARATE
     Route: 048
  3. INGREZZA [Suspect]
     Active Substance: VALBENAZINE
     Indication: TARDIVE DYSKINESIA
     Route: 048
     Dates: start: 20190411
  4. BUSPAR [Concomitant]
     Active Substance: BUSPIRONE HYDROCHLORIDE
  5. LAMOTRIGINE. [Concomitant]
     Active Substance: LAMOTRIGINE
     Dosage: AT NIGHT
     Route: 048
  6. METHYLPHENIDATE. [Concomitant]
     Active Substance: METHYLPHENIDATE
     Route: 048
  7. PRIMIDONE. [Concomitant]
     Active Substance: PRIMIDONE
     Route: 048
  8. ATIVAN [Concomitant]
     Active Substance: LORAZEPAM
  9. FLUOXETINE [Concomitant]
     Active Substance: FLUOXETINE HYDROCHLORIDE
     Dosage: IN THE MORNING
     Route: 048
  10. LEVOTHYROXINE. [Concomitant]
     Active Substance: LEVOTHYROXINE
     Route: 048
  11. CASTOR OIL. [Concomitant]
     Active Substance: CASTOR OIL

REACTIONS (11)
  - Kidney infection [Recovered/Resolved]
  - Mood altered [Recovered/Resolved]
  - Nephritis [Recovered/Resolved]
  - Sepsis [Recovered/Resolved]
  - Escherichia test positive [Recovered/Resolved]
  - Metabolic disorder [Recovered/Resolved]
  - Blood glucose increased [Recovered/Resolved]
  - Acute kidney injury [Recovered/Resolved]
  - Blindness [Recovered/Resolved]
  - Anaemia [Recovered/Resolved]
  - Blood potassium decreased [Recovered/Resolved]

NARRATIVE: CASE EVENT DATE: 20200601
